FAERS Safety Report 9722076 (Version 1)
Quarter: 2013Q4

REPORT INFORMATION
  Report Type: Spontaneous
  Country: US (occurrence: US)
  Receive Date: 20131202
  Receipt Date: 20131202
  Transmission Date: 20140711
  Serious: No
  Sender: FDA-Public Use
  Company Number: US-BIOGENIDEC-2013BI098439

PATIENT
  Age: 58 Year
  Sex: Female
  Weight: 74 kg

DRUGS (17)
  1. TECFIDERA [Suspect]
     Indication: PRODUCT USED FOR UNKNOWN INDICATION
     Route: 048
  2. MS CONTIN [Concomitant]
  3. ASA [Concomitant]
  4. ZYRTEC [Concomitant]
  5. BENADRYL [Concomitant]
  6. VAGIFEM [Concomitant]
  7. ALENDRONATE [Concomitant]
  8. LISINOPRIL [Concomitant]
  9. VERAPAMIL [Concomitant]
  10. ZOCOR [Concomitant]
  11. DYAZIDE [Concomitant]
  12. PROTONIX [Concomitant]
  13. CYMBALTA [Concomitant]
  14. NEURONTIN [Concomitant]
  15. COQ-10 [Concomitant]
  16. OSCAL [Concomitant]
  17. VITAMIN D [Concomitant]

REACTIONS (5)
  - Muscular weakness [Unknown]
  - Back pain [Unknown]
  - Musculoskeletal pain [Unknown]
  - Malaise [Unknown]
  - Neck pain [Unknown]
